FAERS Safety Report 8822777 (Version 2)
Quarter: 2012Q4

REPORT INFORMATION
  Report Type: 
  Country: US (occurrence: US)
  Receive Date: 20121003
  Receipt Date: 20121010
  Transmission Date: 20130627
  Serious: Yes (Hospitalization, Other)
  Sender: FDA-Public Use
  Company Number: US-ALLERGAN-1211539US

PATIENT
  Age: 67 Year
  Sex: Female
  Weight: 170 kg

DRUGS (5)
  1. BOTOX� [Suspect]
     Indication: CHRONIC MIGRAINE
     Dosage: 200 UNITS, single
     Route: 030
     Dates: start: 20120730, end: 20120730
  2. PREVACID [Concomitant]
     Indication: GERD
     Dosage: UNK UNK, qd
     Route: 048
     Dates: start: 2010
  3. SOMA [Concomitant]
     Indication: MIGRAINE
     Dosage: UNK
     Route: 048
     Dates: start: 2002
  4. DEMEROL [Concomitant]
     Indication: MIGRAINE
     Dosage: UNK
     Route: 048
     Dates: start: 2002
  5. TRAZODONE [Concomitant]
     Indication: INSOMNIA
     Dosage: UNK
     Route: 048
     Dates: start: 1997

REACTIONS (13)
  - Palpitations [Not Recovered/Not Resolved]
  - Head discomfort [Not Recovered/Not Resolved]
  - Wrong technique in drug usage process [Unknown]
  - Sensation of heaviness [Not Recovered/Not Resolved]
  - Osteitis [Not Recovered/Not Resolved]
  - Muscular weakness [Not Recovered/Not Resolved]
  - Headache [Not Recovered/Not Resolved]
  - Nausea [Recovered/Resolved]
  - Asthenia [Not Recovered/Not Resolved]
  - Vomiting [Recovered/Resolved]
  - Muscular weakness [Not Recovered/Not Resolved]
  - Dysuria [Not Recovered/Not Resolved]
  - Dizziness [Not Recovered/Not Resolved]
